FAERS Safety Report 10247573 (Version 2)
Quarter: 2015Q3

REPORT INFORMATION
  Report Type: Spontaneous
  Country: US (occurrence: US)
  Receive Date: 20140619
  Receipt Date: 20150717
  Transmission Date: 20151125
  Serious: Yes (Other)
  Sender: FDA-Public Use
  Company Number: US-SA-2014SA078349

PATIENT
  Age: 32 Year
  Sex: Male

DRUGS (4)
  1. PLAVIX [Suspect]
     Active Substance: CLOPIDOGREL BISULFATE
     Indication: THROMBOSIS
     Route: 048
     Dates: start: 1995, end: 2008
  2. ASPIRIN. [Concomitant]
     Active Substance: ASPIRIN
  3. PLAVIX [Suspect]
     Active Substance: CLOPIDOGREL BISULFATE
     Indication: STENT PLACEMENT
     Route: 048
     Dates: start: 1995, end: 2008
  4. PLAVIX [Suspect]
     Active Substance: CLOPIDOGREL BISULFATE
     Indication: PERIPHERAL ARTERIAL OCCLUSIVE DISEASE
     Route: 048
     Dates: start: 1995, end: 2008

REACTIONS (7)
  - Arterial graft [Unknown]
  - Multiple injuries [Unknown]
  - Peripheral arterial occlusive disease [Unknown]
  - Nerve injury [Unknown]
  - Gastrointestinal haemorrhage [Unknown]
  - Stent placement [Unknown]
  - Haemorrhage [Unknown]

NARRATIVE: CASE EVENT DATE: 20061214
